FAERS Safety Report 8299348-2 (Version None)
Quarter: 2012Q2

REPORT INFORMATION
  Report Type: 
  Country: None (occurrence: None)
  Receive Date: 20120419
  Receipt Date: 20120410
  Transmission Date: 20120825
  Serious: Yes (Other)
  Sender: FDA-Public Use
  Company Number: CA-JNJFOC-20120205671

PATIENT
  Sex: Female
  Weight: 74.84 kg

DRUGS (13)
  1. EXTRA STRENGTH TYLENOL [Suspect]
     Route: 048
  2. ALBUTEROL [Concomitant]
     Route: 065
  3. TYLENOL-500 [Suspect]
     Indication: NECK PAIN
     Route: 048
     Dates: start: 20050101
  4. NASONEX [Concomitant]
     Route: 065
  5. NEXIUM [Concomitant]
  6. RAMIPRIL [Concomitant]
     Route: 065
  7. ARTHROTEC [Concomitant]
     Route: 065
  8. SYMBICORT [Concomitant]
     Route: 065
  9. TYLENOL W/ CODEINE NO. 3 [Suspect]
     Indication: NECK PAIN
     Route: 048
     Dates: start: 20050101
  10. TYLENOL W/ CODEINE NO. 4 [Suspect]
     Indication: NECK PAIN
     Route: 048
     Dates: start: 20050101
  11. TYLENOL-500 [Suspect]
     Indication: PAIN MANAGEMENT
     Route: 048
     Dates: start: 20050101
  12. EXTRA STRENGTH TYLENOL [Suspect]
     Indication: NECK PAIN
     Route: 048
     Dates: start: 20050101
  13. GLUCOSAMINE [Concomitant]
     Route: 065

REACTIONS (4)
  - HAEMANGIOMA [None]
  - HEPATIC CYST [None]
  - WEIGHT INCREASED [None]
  - ABDOMINAL PAIN [None]
